FAERS Safety Report 14586765 (Version 3)
Quarter: 2018Q4

REPORT INFORMATION
  Report Type: Report from Study
  Country: DE (occurrence: DE)
  Receive Date: 20180301
  Receipt Date: 20181212
  Transmission Date: 20190204
  Serious: Yes (Death, Other)
  Sender: FDA-Public Use
  Company Number: DE-PFIZER INC-2018033487

PATIENT
  Age: 51 Year
  Sex: Male
  Weight: 83 kg

DRUGS (17)
  1. FLUOROURACIL. [Suspect]
     Active Substance: FLUOROURACIL
     Dosage: 2600 - 4800 MG
     Route: 042
     Dates: start: 20170125, end: 20170322
  2. FLUOROURACIL. [Suspect]
     Active Substance: FLUOROURACIL
     Dosage: 2600 MG, UNK
     Route: 042
     Dates: start: 20170322
  3. FLUOROURACIL. [Suspect]
     Active Substance: FLUOROURACIL
     Dosage: 470 MG, UNK
     Route: 040
     Dates: start: 20170322
  4. PANITUMUMAB [Suspect]
     Active Substance: PANITUMUMAB
     Indication: COLORECTAL CANCER METASTATIC
     Dosage: 500 MG, UNK
     Route: 042
     Dates: start: 20170125
  5. PANITUMUMAB [Suspect]
     Active Substance: PANITUMUMAB
     Dosage: 440 MG, 1X/DAY
     Route: 042
     Dates: start: 20170322, end: 20170322
  6. PANTOPRAZOLE RATIOPHARM [Concomitant]
     Indication: PROPHYLAXIS
     Dosage: 20 MG, UNK
     Route: 048
     Dates: start: 20170224
  7. FORTECORTIN [DEXAMETHASONE ACETATE] [Concomitant]
     Dosage: 8 MG, UNK PER CYCLE
     Route: 048
     Dates: start: 20170125, end: 20170322
  8. NOVALGIN [CAFFEINE;PARACETAMOL;PROPYPHENAZONE] [Concomitant]
     Indication: PAIN
     Dosage: 500 MG, UNK
     Route: 048
     Dates: start: 20170125
  9. ALOXI [Concomitant]
     Active Substance: PALONOSETRON HYDROCHLORIDE
     Indication: PROPHYLAXIS OF NAUSEA AND VOMITING
     Dosage: 250 MUG, UNK PER CYCLE
     Route: 042
     Dates: start: 20170125, end: 20170322
  10. PEGYLATED LIPOSOMAL IRINOTECAN [Suspect]
     Active Substance: IRINOTECAN HYDROCHLORIDE
     Dosage: 290 MG, UNK
     Dates: start: 20170322, end: 20170322
  11. CALCIUM FOLINATE [Suspect]
     Active Substance: LEUCOVORIN CALCIUM
     Indication: COLORECTAL CANCER METASTATIC
     Dosage: 800 MG, UNK
     Dates: start: 20170125, end: 20170322
  12. PEGYLATED LIPOSOMAL IRINOTECAN [Suspect]
     Active Substance: IRINOTECAN HYDROCHLORIDE
     Indication: COLORECTAL CANCER METASTATIC
     Dosage: 300 MG, UNK
     Dates: start: 20170125, end: 20170125
  13. FLUOROURACIL. [Suspect]
     Active Substance: FLUOROURACIL
     Indication: COLORECTAL CANCER METASTATIC
     Dosage: 500 MG, UNK
     Route: 040
     Dates: start: 20170125
  14. FLUOROURACIL. [Suspect]
     Active Substance: FLUOROURACIL
     Dosage: 4800 MG, UNK
     Route: 042
     Dates: start: 20170125
  15. GRANISETRON [Concomitant]
     Active Substance: GRANISETRON
     Indication: PROPHYLAXIS OF NAUSEA AND VOMITING
     Dosage: 2 MG, UNK PER CYCLE
     Route: 048
     Dates: start: 20170125, end: 20170322
  16. DOXYCYCLIN RATIOPHARM [Concomitant]
     Indication: PROPHYLAXIS
     Dosage: 100 MG, QD
     Route: 048
     Dates: start: 20170125
  17. HYDROCORTISON /00028601/ [Concomitant]
     Active Substance: HYDROCORTISONE
     Indication: PROPHYLAXIS
     Dosage: 4 UNK, UNK
     Route: 061
     Dates: start: 20170125

REACTIONS (2)
  - Neoplasm progression [Fatal]
  - Rash generalised [Fatal]

NARRATIVE: CASE EVENT DATE: 20170208
